FAERS Safety Report 7670857-X (Version None)
Quarter: 2011Q3

REPORT INFORMATION
  Report Type: 
  Country: None (occurrence: None)
  Receive Date: 20110809
  Receipt Date: 20110802
  Transmission Date: 20111222
  Serious: Yes (Death)
  Sender: FDA-Public Use
  Company Number: IE-AMGEN-IRLSP2011039204

PATIENT
  Age: 90 Year
  Sex: Female

DRUGS (10)
  1. ONE ALPHA [Concomitant]
  2. VERAPAMIL [Concomitant]
  3. CALCIUM CARBONATE [Concomitant]
  4. ALBUTEROL [Concomitant]
     Route: 055
  5. DIGOXIN [Concomitant]
  6. RIVASTIGMINE [Concomitant]
  7. ARANESP [Suspect]
     Indication: RENAL FAILURE CHRONIC
     Dosage: 20 A?G, QMO
     Route: 058
     Dates: start: 20101101
  8. FRUMIL [Concomitant]
  9. FOLIC ACID [Concomitant]
  10. PERSANTIN [Concomitant]

REACTIONS (1)
  - DEATH [None]
